FAERS Safety Report 7630311-8 (Version None)
Quarter: 2011Q3

REPORT INFORMATION
  Report Type: 
  Country: None (occurrence: None)
  Receive Date: 20110722
  Receipt Date: 20110711
  Transmission Date: 20111222
  Serious: Yes (Hospitalization)
  Sender: FDA-Public Use
  Company Number: NL-MEDIMMUNE-MEDI-0013307

PATIENT
  Sex: Male

DRUGS (2)
  1. SYNAGIS [Suspect]
     Route: 030
     Dates: start: 20101005, end: 20101005
  2. SYNAGIS [Suspect]
     Route: 030
     Dates: start: 20110419, end: 20110419

REACTIONS (6)
  - RHINOVIRUS INFECTION [None]
  - STRIDOR [None]
  - RESPIRATORY TRACT INFECTION [None]
  - UPPER RESPIRATORY TRACT INFECTION [None]
  - WHEEZING [None]
  - INTENSIVE CARE [None]
